FAERS Safety Report 10261978 (Version 1)
Quarter: 2014Q2

REPORT INFORMATION
  Report Type: Spontaneous
  Country: US (occurrence: US)
  Receive Date: 20140626
  Receipt Date: 20140626
  Transmission Date: 20141212
  Serious: Yes (Other)
  Sender: FDA-Public Use
  Company Number: US-PFIZER INC-2014174800

PATIENT
  Age: 83 Year
  Sex: Female
  Weight: 74.8 kg

DRUGS (3)
  1. PROTONIX [Suspect]
     Indication: GASTROOESOPHAGEAL REFLUX DISEASE
     Dosage: 40 MG, DAILY
  2. PROTONIX [Suspect]
     Dosage: 40 MG, 2X/DAY
  3. EFFEXOR XR [Suspect]
     Indication: DEPRESSION
     Dosage: 75 MG, DAILY

REACTIONS (2)
  - Ankle fracture [Unknown]
  - Intentional product misuse [Unknown]
